FAERS Safety Report 9073430 (Version 1)
Quarter: 2013Q1

REPORT INFORMATION
  Report Type: Report from Study
  Country: US (occurrence: US)
  Receive Date: 20130129
  Receipt Date: 20130129
  Transmission Date: 20140127
  Serious: No
  Sender: FDA-Public Use
  Company Number: US-ABBOTT-12P-163-0913799-00

PATIENT
  Age: 61 Year
  Sex: Female

DRUGS (4)
  1. HUMIRA 40 MG/0.8 ML PEN [Suspect]
     Indication: RHEUMATOID ARTHRITIS
     Dates: start: 201109
  2. HUMIRA 40 MG/0.8 ML PEN [Suspect]
  3. PREDNISONE [Concomitant]
     Indication: RHEUMATOID ARTHRITIS
     Dosage: 7 1/2 MG DAILY
  4. TYLENOL [Concomitant]
     Indication: PAIN
     Dosage: AS NEEDED

REACTIONS (9)
  - Cough [Not Recovered/Not Resolved]
  - Drug ineffective [Recovering/Resolving]
  - Injection site pain [Not Recovered/Not Resolved]
  - Injection site papule [Recovering/Resolving]
  - Injection site pruritus [Not Recovered/Not Resolved]
  - Sinus congestion [Not Recovered/Not Resolved]
  - Injection site haemorrhage [Recovered/Resolved]
  - Paranasal sinus hypersecretion [Not Recovered/Not Resolved]
  - Sinusitis [Recovering/Resolving]
